FAERS Safety Report 4363920-2 (Version None)
Quarter: 2004Q2

REPORT INFORMATION
  Report Type: 
  Country: None (occurrence: None)
  Receive Date: 20040518
  Receipt Date: 20040405
  Transmission Date: 20050107
  Serious: No
  Sender: FDA-Public Use
  Company Number: PHEH2004US03883

PATIENT
  Age: 74 Year
  Sex: Male

DRUGS (1)
  1. GLEEVEC [Suspect]
     Indication: CHRONIC MYELOID LEUKAEMIA
     Dosage: 400 MGAM, 200 MG HS, ORAL
     Route: 048
     Dates: start: 20040101, end: 20040301

REACTIONS (3)
  - INCREASED TENDENCY TO BRUISE [None]
  - MUSCLE CRAMP [None]
  - WHITE BLOOD CELL COUNT INCREASED [None]
